FAERS Safety Report 4617712-7 (Version None)
Quarter: 2005Q1

REPORT INFORMATION
  Report Type: 
  Country: None (occurrence: None)
  Receive Date: 20050322
  Receipt Date: 20050315
  Transmission Date: 20050727
  Serious: Yes (Other)
  Sender: FDA-Public Use
  Company Number: HQWYE746702MAR05

PATIENT
  Age: 58 Year
  Sex: Male

DRUGS (15)
  1. TACROLIMUS,                      CONTROL FOR SIROLIMUS [Suspect]
     Indication: PROPHYLAXIS AGAINST TRANSPLANT REJECTION
     Dosage: 4 - 6 MG 1X PER 1 DAY, ORAL
     Route: 048
     Dates: start: 20020618, end: 20040503
  2. ARANESP [Concomitant]
  3. RENAGEL           (SEVELAMER) [Concomitant]
  4. SODIUM CARBONATE                      (SODIUM BICARBONATE) [Concomitant]
  5. CALCIUM CARBONATE          (CALCIUM CARBONATE) [Concomitant]
  6. ATROVENT [Concomitant]
  7. PULMICORT [Concomitant]
  8. FUROSEMIDE [Concomitant]
  9. ROCALTROL [Concomitant]
  10. AAS    (ACETYLSALACYLIC ACID) [Concomitant]
  11. HYDRALAZINE HCL [Concomitant]
  12. CARVEDILOL [Concomitant]
  13. DOXAZOSIN          (DOXAZOSIN) [Concomitant]
  14. RAMIPRIL [Concomitant]
  15. PREDNISONE [Concomitant]

REACTIONS (3)
  - GRAFT LOSS [None]
  - HAEMODIALYSIS [None]
  - KIDNEY TRANSPLANT REJECTION [None]
